FAERS Safety Report 5023369-6 (Version None)
Quarter: 2006Q2

REPORT INFORMATION
  Report Type: 
  Country: None (occurrence: None)
  Receive Date: 20060501
  Receipt Date: 20050513
  Transmission Date: 20061013
  Serious: Yes (Other)
  Sender: FDA-Public Use
  Company Number: HQWYE744116MAY05

PATIENT
  Age: 53 Year
  Sex: Female

DRUGS (12)
  1. PROTONIX [Suspect]
     Dosage: SEE IMAGE
     Route: 042
     Dates: start: 20050512, end: 20050501
  2. PROTONIX [Suspect]
     Dosage: SEE IMAGE
     Route: 042
     Dates: start: 20050509, end: 20050511
  3. PROMETHAZINE [Concomitant]
  4. PERCOCET [Concomitant]
  5. IMODIUM [Concomitant]
  6. LASIX [Concomitant]
  7. COREG [Concomitant]
  8. MORPHINE [Concomitant]
  9. OXYCODONE (OXYCODONE) [Concomitant]
  10. LEVAQUIN [Concomitant]
  11. FLUCONAZOLE [Concomitant]
  12. PROTONIX [Concomitant]

REACTIONS (2)
  - HEPATIC ENZYME INCREASED [None]
  - RHABDOMYOLYSIS [None]
